FAERS Safety Report 8819038 (Version 1)
Quarter: 2012Q4

REPORT INFORMATION
  Report Type: Report from Study
  Country: US (occurrence: US)
  Receive Date: 20121001
  Receipt Date: 20121001
  Transmission Date: 20130627
  Serious: Yes (Hospitalization)
  Sender: FDA-Public Use
  Company Number: US-JNJFOC-20120910629

PATIENT
  Age: 61 None
  Sex: Female
  Weight: 71.67 kg

DRUGS (2)
  1. REMICADE [Suspect]
     Indication: PALINDROMIC RHEUMATISM
     Route: 042
     Dates: start: 201205, end: 201205
  2. METHOTREXATE [Concomitant]
     Route: 065
     Dates: end: 20120708

REACTIONS (2)
  - Herpes zoster [Not Recovered/Not Resolved]
  - Nausea [Unknown]
